FAERS Safety Report 9206142 (Version 2)
Quarter: 2013Q4

REPORT INFORMATION
  Report Type: Spontaneous
  Country: US (occurrence: US)
  Receive Date: 20130403
  Receipt Date: 20131111
  Transmission Date: 20140711
  Serious: Yes (Hospitalization)
  Sender: FDA-Public Use
  Company Number: US-BAYER-2013-040463

PATIENT
  Age: 30 Year
  Sex: Female
  Weight: 74.83 kg

DRUGS (9)
  1. YAZ [Suspect]
     Dosage: UNK
     Route: 048
     Dates: start: 2008, end: 2010
  2. YASMIN [Suspect]
     Dosage: UNK
     Route: 048
     Dates: start: 2008, end: 2010
  3. OCELLA [Suspect]
     Dosage: UNK
     Route: 048
     Dates: start: 2008, end: 2010
  4. LEVOTHROID [Concomitant]
     Indication: THYROID DISORDER
     Dosage: 137 MCG, UNK
     Dates: start: 20101209, end: 20130509
  5. MOVIPREP [Concomitant]
     Dosage: UNK
     Dates: start: 20110117
  6. DICYCLOMINE HCL [Concomitant]
     Indication: GALLBLADDER DISORDER
     Dosage: 20 MG, Q 4 H PRN
     Dates: start: 20110415
  7. B12 [Concomitant]
     Dosage: ONE TAB DAILY
  8. OMEGA 3 FATTY ACIDS [Concomitant]
     Indication: SUPPLEMENTATION THERAPY
     Dosage: 1000 MG, DAILY
  9. DICYCLOMINE [Concomitant]
     Dosage: 20 MG, UNK
     Dates: start: 20110317

REACTIONS (10)
  - Cholelithiasis [None]
  - Abdominal pain [None]
  - Injury [None]
  - Pain [None]
  - Emotional distress [None]
  - General physical health deterioration [None]
  - Pain [None]
  - Anhedonia [None]
  - Fear [None]
  - Anxiety [None]
